FAERS Safety Report 16751152 (Version 3)
Quarter: 2020Q3

REPORT INFORMATION
  Report Type: Report from Study
  Country: US (occurrence: US)
  Receive Date: 20190828
  Receipt Date: 20200702
  Transmission Date: 20201102
  Serious: Yes (Hospitalization, Other)
  Sender: FDA-Public Use
  Company Number: US-ACTELION-A-US2019-194739

PATIENT
  Age: 65 Year
  Sex: Male

DRUGS (1)
  1. OPSUMIT [Suspect]
     Active Substance: MACITENTAN
     Indication: PULMONARY ARTERIAL HYPERTENSION
     Dosage: 10 MG, QD
     Route: 048
     Dates: start: 20190320

REACTIONS (4)
  - Liver transplant [Recovering/Resolving]
  - Hospitalisation [Unknown]
  - Renal transplant [Unknown]
  - Portopulmonary hypertension [Recovering/Resolving]

NARRATIVE: CASE EVENT DATE: 201908
